APPROVED DRUG PRODUCT: IBUPROFEN
Active Ingredient: IBUPROFEN
Strength: 200MG
Dosage Form/Route: TABLET;ORAL
Application: A079129 | Product #001
Applicant: STRIDES PHARMA GLOBAL PTE LTD
Approved: Mar 28, 2011 | RLD: No | RS: No | Type: OTC